FAERS Safety Report 6901124-7 (Version None)
Quarter: 2010Q3

REPORT INFORMATION
  Report Type: 
  Country: None (occurrence: None)
  Receive Date: 20100708
  Receipt Date: 20091009
  Transmission Date: 20110219
  Serious: Yes (Other)
  Sender: FDA-Public Use
  Company Number: 2009251192

PATIENT
  Age: 67 Year
  Sex: Male
  Weight: 72.1 kg

DRUGS (8)
  1. CHANTIX [Suspect]
     Indication: SMOKING CESSATION THERAPY
     Dosage: ORAL
     Route: 048
     Dates: start: 20090506
  2. VICODIN [Concomitant]
  3. SOTALOL HCL [Concomitant]
  4. HYZAAR [Concomitant]
  5. SIMVASTATIN [Concomitant]
  6. CILOSTAZOL [Concomitant]
  7. ASPIRIN [Concomitant]
  8. IRON (IRON) [Concomitant]

REACTIONS (1)
  - SUICIDAL IDEATION [None]
